FAERS Safety Report 20264149 (Version 1)
Quarter: 2021Q4

REPORT INFORMATION
  Report Type: Spontaneous
  Country: US (occurrence: None)
  Receive Date: 20211230
  Receipt Date: 20211230
  Transmission Date: 20220303
  Serious: Yes (Other)
  Sender: FDA-Public Use
  Company Number: None

PATIENT
  Age: 56 Year
  Sex: Female
  Weight: 63 kg

DRUGS (3)
  1. NURTEC ODT [Suspect]
     Active Substance: RIMEGEPANT SULFATE
     Indication: Migraine
     Dosage: OTHER QUANTITY : 8 TABLET(S);?OTHER FREQUENCY : EVERY OTHER DAY;?
     Route: 060
     Dates: start: 20211202, end: 20211218
  2. NURTEC ODT [Suspect]
     Active Substance: RIMEGEPANT SULFATE
     Indication: Headache
  3. EMGALITY [Suspect]
     Active Substance: GALCANEZUMAB-GNLM
     Indication: Migraine
     Dosage: OTHER QUANTITY : 1 INJECTION(S);?OTHER FREQUENCY : ONCE EVERY 4 WEEKS;?OTHER ROUTE : INJECTED INTO A
     Route: 050
     Dates: start: 20211012, end: 20211112

REACTIONS (3)
  - Hypersensitivity [None]
  - Migraine [None]
  - Headache [None]

NARRATIVE: CASE EVENT DATE: 20211210
